FAERS Safety Report 10202171 (Version 2)
Quarter: 2014Q2

REPORT INFORMATION
  Report Type: Spontaneous
  Country: JP (occurrence: JP)
  Receive Date: 20140528
  Receipt Date: 20140605
  Transmission Date: 20141212
  Serious: Yes (Other)
  Sender: FDA-Public Use
  Company Number: JP-GLAXOSMITHKLINE-B0994546A

PATIENT
  Age: 24 Year
  Sex: Female

DRUGS (2)
  1. LAMICTAL [Suspect]
     Indication: BIPOLAR I DISORDER
     Dosage: 25MG PER DAY
     Route: 048
     Dates: start: 201204, end: 201204
  2. LOXONIN [Concomitant]
     Route: 065

REACTIONS (1)
  - Oculomucocutaneous syndrome [Recovered/Resolved]
